FAERS Safety Report 23699102 (Version 1)
Quarter: 2024Q2

REPORT INFORMATION
  Report Type: Spontaneous
  Country: US (occurrence: US)
  Receive Date: 20240402
  Receipt Date: 20240402
  Transmission Date: 20240715
  Serious: Yes (Hospitalization)
  Sender: FDA-Public Use
  Company Number: US-ABBVIE-5699549

PATIENT

DRUGS (1)
  1. RINVOQ [Suspect]
     Active Substance: UPADACITINIB
     Indication: Colitis ulcerative
     Route: 048
     Dates: start: 202311

REACTIONS (6)
  - Haemoglobin abnormal [Unknown]
  - Drug ineffective [Unknown]
  - Colectomy [Unknown]
  - Colitis ulcerative [Unknown]
  - Weight decreased [Unknown]
  - Malabsorption [Unknown]

NARRATIVE: CASE EVENT DATE: 20240201
